FAERS Safety Report 12556546 (Version 1)
Quarter: 2016Q3

REPORT INFORMATION
  Report Type: Spontaneous
  Country: IT (occurrence: IT)
  Receive Date: 20160714
  Receipt Date: 20160714
  Transmission Date: 20161109
  Serious: Yes (Other)
  Sender: FDA-Public Use
  Company Number: IT-RECORDATI RARE DISEASES-IT-R13005-16-00175

PATIENT
  Sex: Female

DRUGS (3)
  1. DACTINOMYCIN [Suspect]
     Active Substance: DACTINOMYCIN
     Indication: ALVEOLAR RHABDOMYOSARCOMA
     Route: 064
     Dates: start: 2005, end: 2005
  2. CYCLOPHOSPHAMIDE. [Suspect]
     Active Substance: CYCLOPHOSPHAMIDE
     Indication: ALVEOLAR RHABDOMYOSARCOMA
     Route: 064
     Dates: start: 2005, end: 2005
  3. DOXORUBICIN [Suspect]
     Active Substance: DOXORUBICIN
     Indication: ALVEOLAR RHABDOMYOSARCOMA
     Route: 064
     Dates: start: 2005, end: 2005

REACTIONS (2)
  - Foetal exposure during pregnancy [Recovered/Resolved]
  - Oligohydramnios [Recovered/Resolved]

NARRATIVE: CASE EVENT DATE: 2005
